FAERS Safety Report 9371829 (Version 1)
Quarter: 2013Q2

REPORT INFORMATION
  Report Type: Report from Study
  Country: US (occurrence: US)
  Receive Date: 20130627
  Receipt Date: 20130627
  Transmission Date: 20140414
  Serious: Yes (Other)
  Sender: FDA-Public Use
  Company Number: US-MYLANLABS-2012S1007496

PATIENT
  Age: 61 Year
  Sex: Male

DRUGS (13)
  1. CLOZAPINE TABLETS [Suspect]
     Indication: SCHIZOPHRENIA
     Dates: start: 201204
  2. CLOZAPINE TABLETS [Suspect]
     Indication: SCHIZOPHRENIA
     Route: 048
     Dates: end: 20130308
  3. TYLENOL W/CODEINE NO. 3 [Concomitant]
  4. ALBUTEROL [Concomitant]
     Route: 055
  5. AMITRIPTYLINE [Concomitant]
  6. AMLODIPINE [Concomitant]
  7. ASA [Concomitant]
  8. BENZOTROPINE [Concomitant]
  9. MAGNESIUM CITRATE [Concomitant]
  10. FOLIC ACID [Concomitant]
  11. NAPROXEN [Concomitant]
  12. PROPRANOLOL [Concomitant]
  13. SODIUM PHOSPHATE [Concomitant]

REACTIONS (2)
  - Granulocytopenia [Not Recovered/Not Resolved]
  - Leukopenia [Recovered/Resolved]
